FAERS Safety Report 5480408-6 (Version None)
Quarter: 2007Q4

REPORT INFORMATION
  Report Type: 
  Country: None (occurrence: None)
  Receive Date: 20071004
  Receipt Date: 20071004
  Transmission Date: 20080405
  Serious: Yes (Other)
  Sender: FDA-Public Use
  Company Number: None

PATIENT
  Sex: Female
  Weight: 68.0396 kg

DRUGS (2)
  1. AZO-GESIC   95MG  UNITED RESEARCH [Suspect]
     Indication: ABDOMINAL PAIN LOWER
     Dosage: TWO TABLETS  3 TIMES DAILY PO
     Route: 048
     Dates: start: 20071001, end: 20071001
  2. AZO-GESIC   95MG  UNITED RESEARCH [Suspect]
     Indication: DYSURIA
     Dosage: TWO TABLETS  3 TIMES DAILY PO
     Route: 048
     Dates: start: 20071001, end: 20071001

REACTIONS (4)
  - CHEST DISCOMFORT [None]
  - MITRAL VALVE DISEASE [None]
  - MUSCULOSKELETAL CHEST PAIN [None]
  - SELF-MEDICATION [None]
